FAERS Safety Report 25852222 (Version 1)
Quarter: 2025Q3

REPORT INFORMATION
  Report Type: Spontaneous
  Country: CN (occurrence: CN)
  Receive Date: 20250926
  Receipt Date: 20250926
  Transmission Date: 20251020
  Serious: Yes (Other)
  Sender: NOVARTIS
  Company Number: CN-002147023-NVSC2025CN147622

PATIENT

DRUGS (5)
  1. SACUBITRIL\VALSARTAN [Suspect]
     Active Substance: SACUBITRIL\VALSARTAN
     Indication: Ischaemic cardiomyopathy
     Dosage: 100 MG, BID
     Route: 065
  2. ASPIRIN [Concomitant]
     Active Substance: ASPIRIN
     Indication: Ischaemic cardiomyopathy
     Dosage: 100 MG, QD (ENTERIC-COATED TABLETS)
     Route: 065
  3. FUROSEMIDE [Concomitant]
     Active Substance: FUROSEMIDE
     Indication: Ischaemic cardiomyopathy
     Dosage: 20 MG, QD
     Route: 065
  4. FUROSEMIDE [Concomitant]
     Active Substance: FUROSEMIDE
     Dosage: 40 MG, QD (FOLLOWED BY A MAINTENANCE DOSE OF 40 MG/TIME ONCE DAILY)
     Route: 065
  5. METOPROLOL TARTRATE [Concomitant]
     Active Substance: METOPROLOL TARTRATE
     Indication: Ischaemic cardiomyopathy
     Dosage: 6.25 MG, BID (WITH DOSES ADJUSTED BASED ON CONDITION, TO A MAXIMUM DOSE OF ?50 MG/TIME TWICE DAILY)
     Route: 065

REACTIONS (2)
  - Hyperkalaemia [Unknown]
  - Off label use [Unknown]
